FAERS Safety Report 25649496 (Version 1)
Quarter: 2025Q3

REPORT INFORMATION
  Report Type: Spontaneous
  Country: US (occurrence: US)
  Receive Date: 20250806
  Receipt Date: 20250806
  Transmission Date: 20251021
  Serious: Yes (Hospitalization, Other)
  Sender: RANBAXY
  Company Number: US-SUN PHARMACEUTICAL INDUSTRIES INC-2025R1-520768

PATIENT
  Age: 79 Year
  Sex: Female

DRUGS (3)
  1. BUMETANIDE [Suspect]
     Active Substance: BUMETANIDE
     Indication: Cardiac failure chronic
     Route: 065
  2. METOLAZONE [Suspect]
     Active Substance: METOLAZONE
     Indication: Cardiac failure chronic
     Route: 065
  3. TIRZEPATIDE [Suspect]
     Active Substance: TIRZEPATIDE
     Indication: Cardiac failure chronic
     Route: 065

REACTIONS (2)
  - Hyponatraemia [Recovered/Resolved]
  - Acute kidney injury [Recovered/Resolved]
